FAERS Safety Report 7359070-3 (Version None)
Quarter: 2011Q1

REPORT INFORMATION
  Report Type: 
  Country: None (occurrence: None)
  Receive Date: 20110317
  Receipt Date: 20110308
  Transmission Date: 20110831
  Serious: Yes (Other)
  Sender: FDA-Public Use
  Company Number: GB-WATSON-2011-03132

PATIENT
  Age: 84 Year
  Sex: Female

DRUGS (2)
  1. ALENDRONATE SODIUM [Suspect]
     Indication: WRIST FRACTURE
     Dosage: UNK
  2. ALENDRONATE SODIUM [Suspect]
     Indication: SPINAL FRACTURE

REACTIONS (1)
  - HIP FRACTURE [None]
